FAERS Safety Report 8720134 (Version 2)
Quarter: 2013Q4

REPORT INFORMATION
  Report Type: Report from Study
  Country: JP (occurrence: JP)
  Receive Date: 20120813
  Receipt Date: 20131106
  Transmission Date: 20140711
  Serious: Yes (Hospitalization)
  Sender: FDA-Public Use
  Company Number: JP-009507513-1208JPN004972

PATIENT
  Age: 67 Year
  Sex: Male
  Weight: 47 kg

DRUGS (9)
  1. PEGINTRON [Suspect]
     Indication: HEPATITIS C
     Dosage: 1.7MCG/KG/WEEK
     Route: 058
     Dates: start: 20120207, end: 20120214
  2. PEGINTRON [Suspect]
     Indication: HEPATITIS C
     Dosage: 0.85MCG/KG/WEEK
     Route: 058
     Dates: start: 20120221, end: 20120321
  3. REBETOL [Suspect]
     Indication: HEPATITIS C
     Route: 048
     Dates: start: 20120207, end: 20120328
  4. TELAVIC [Suspect]
     Indication: HEPATITIS C
     Route: 048
     Dates: start: 20120207
  5. TELAVIC [Suspect]
     Route: 048
     Dates: start: 20120320
  6. TELAVIC [Suspect]
     Route: 048
     Dates: start: 20120321, end: 20120328
  7. XYZAL [Suspect]
     Route: 048
     Dates: end: 20120219
  8. LENDORMIN [Suspect]
     Indication: INSOMNIA
     Dosage: IT IS SINGLE USE DURING 0.25MG/DAY.
     Route: 048
  9. EBASTEL [Concomitant]
     Route: 048
     Dates: start: 20120220, end: 20120328

REACTIONS (1)
  - Drug eruption [Recovered/Resolved]
